FAERS Safety Report 7409877-9 (Version None)
Quarter: 2011Q2

REPORT INFORMATION
  Report Type: 
  Country: None (occurrence: None)
  Receive Date: 20110412
  Receipt Date: 20110201
  Transmission Date: 20111010
  Serious: No
  Sender: FDA-Public Use
  Company Number: US-BAYER-2011-014596

PATIENT
  Age: 75 Year
  Sex: Female
  Weight: 95 kg

DRUGS (12)
  1. NAMENDA [Concomitant]
  2. GABAPENTIN [Concomitant]
  3. CETIRIZINE HCL [Concomitant]
  4. TRIAMTERENE [Concomitant]
  5. ARICEPT [Concomitant]
  6. CRESTOR [Concomitant]
  7. NEXIUM [Concomitant]
  8. ALEVE (CAPLET) [Suspect]
     Indication: ACCIDENTAL EXPOSURE
     Dosage: 440 MG, BID
     Route: 048
     Dates: start: 20110201
  9. SINGULAIR [Concomitant]
  10. CITALOPRAM [Concomitant]
  11. DICYCLOMINE [Concomitant]
  12. ATENOLOL [Concomitant]

REACTIONS (1)
  - NO ADVERSE EVENT [None]
